FAERS Safety Report 8977016 (Version 1)
Quarter: 2012Q4

REPORT INFORMATION
  Report Type: 
  Country: BR (occurrence: BR)
  Receive Date: 20121220
  Receipt Date: 20121220
  Transmission Date: 20130627
  Serious: Yes (Other)
  Sender: FDA-Public Use
  Company Number: BR-ELI_LILLY_AND_COMPANY-BR201211008916

PATIENT
  Age: 50 Year
  Sex: Male
  Weight: 120 kg

DRUGS (2)
  1. HUMULIN NPH [Suspect]
     Indication: DIABETES MELLITUS
     Dosage: UNK UNK, tid
     Route: 058
     Dates: start: 1997
  2. HUMULIN REGULAR [Suspect]
     Indication: DIABETES MELLITUS
     Dosage: UNK, tid
     Route: 058
     Dates: start: 1997

REACTIONS (4)
  - Diabetic retinopathy [Unknown]
  - Visual impairment [Unknown]
  - Hyperglycaemia [Unknown]
  - Drug dose omission [Unknown]
